FAERS Safety Report 9637056 (Version 1)
Quarter: 2013Q4

REPORT INFORMATION
  Report Type: Spontaneous
  Country: US (occurrence: US)
  Receive Date: 20131022
  Receipt Date: 20131022
  Transmission Date: 20140711
  Serious: No
  Sender: FDA-Public Use
  Company Number: US-B.I. PHARMACEUTICALS,INC./RIDGEFIELD-2013-BI-31993BP

PATIENT
  Age: 59 Year
  Sex: Male
  Weight: 73 kg

DRUGS (4)
  1. VIRAMUNE [Suspect]
     Indication: HIV INFECTION
     Dosage: 400 MG
     Route: 048
     Dates: start: 2013
  2. VIRAMUNE TABLETS [Suspect]
     Indication: HIV INFECTION
     Dosage: 400 MG
     Route: 048
     Dates: end: 2013
  3. EPSILON [Concomitant]
     Indication: HIV INFECTION
     Route: 048
  4. CROFELEMER [Concomitant]
     Indication: DIARRHOEA
     Dates: start: 2013

REACTIONS (1)
  - Medication residue present [Not Recovered/Not Resolved]
